FAERS Safety Report 6298051-8 (Version None)
Quarter: 2009Q3

REPORT INFORMATION
  Report Type: 
  Country: None (occurrence: None)
  Receive Date: 20090804
  Receipt Date: 20090804
  Transmission Date: 20100115
  Serious: Yes (Life-Threatening, Hospitalization, Disabling, Other)
  Sender: FDA-Public Use
  Company Number: None

PATIENT
  Age: 47 Year
  Sex: Female
  Weight: 104.3273 kg

DRUGS (1)
  1. ADRIAMYCIN PFS [Suspect]
     Indication: NON-HODGKIN'S LYMPHOMA
     Dates: start: 20081001, end: 20090101

REACTIONS (6)
  - CARDIOGENIC SHOCK [None]
  - CARDIOTOXICITY [None]
  - EJECTION FRACTION DECREASED [None]
  - MALAISE [None]
  - MEMORY IMPAIRMENT [None]
  - PERICARDIAL EFFUSION [None]
